FAERS Safety Report 9486337 (Version 1)
Quarter: 2013Q3

REPORT INFORMATION
  Report Type: Spontaneous
  Country: US (occurrence: None)
  Receive Date: 20130827
  Receipt Date: 20130827
  Transmission Date: 20140515
  Serious: Yes (Disabling)
  Sender: FDA-Public Use
  Company Number: None

PATIENT
  Age: 55 Year
  Sex: Female
  Weight: 63.96 kg

DRUGS (4)
  1. SUCRALFATE [Suspect]
     Indication: GASTROOESOPHAGEAL REFLUX DISEASE
     Dosage: 2 TWICE DAILY TAKEN BY MOUTH
     Route: 048
  2. SUCRALFATE [Suspect]
     Indication: ULCER
     Dosage: 2 TWICE DAILY TAKEN BY MOUTH
     Route: 048
  3. OMEPRAZOLE [Suspect]
     Indication: GASTROOESOPHAGEAL REFLUX DISEASE
     Dosage: 1 ONCE DAILY TAKEN BY MOUTH
     Route: 048
  4. OMEPRAZOLE [Suspect]
     Indication: ULCER
     Dosage: 1 ONCE DAILY TAKEN BY MOUTH
     Route: 048

REACTIONS (3)
  - Back pain [None]
  - Dysstasia [None]
  - Gait disturbance [None]
